FAERS Safety Report 19212087 (Version 1)
Quarter: 2021Q2

REPORT INFORMATION
  Report Type: Spontaneous
  Country: NL (occurrence: IT)
  Receive Date: 20210504
  Receipt Date: 20210504
  Transmission Date: 20210717
  Serious: Yes (Other)
  Sender: FDA-Public Use
  Company Number: IT-FRESENIUS KABI-FK202104304

PATIENT
  Age: 59 Year
  Sex: Female
  Weight: 82 kg

DRUGS (17)
  1. BISOPROLOL [Concomitant]
     Active Substance: BISOPROLOL
     Indication: PRODUCT USED FOR UNKNOWN INDICATION
     Dosage: UNK
     Route: 065
     Dates: start: 20151118
  2. PACLITAXEL (MANUFACTURER UNKNOWN) [Suspect]
     Active Substance: PACLITAXEL
     Indication: HER2 POSITIVE BREAST CANCER
     Dosage: 130 MG
     Route: 065
     Dates: start: 20190314, end: 20190610
  3. IVABRADINE [Suspect]
     Active Substance: IVABRADINE
     Dosage: IVABRADINE NOS ?130 MILLIGRAM
     Route: 042
     Dates: start: 20190314, end: 20190610
  4. IVABRADINE [Suspect]
     Active Substance: IVABRADINE
     Dosage: IVABRADINE NOS ?3.6 MICROGRAM/KILOGRAM, Q3WK
     Route: 042
     Dates: start: 20200506, end: 20201104
  5. COLECALCIFEROL [Concomitant]
     Active Substance: CHOLECALCIFEROL
     Indication: PRODUCT USED FOR UNKNOWN INDICATION
     Dosage: UNK
     Route: 065
  6. IVABRADINE [Suspect]
     Active Substance: IVABRADINE
     Dosage: IVABRADINE NOS ?25 MG, QD
     Route: 042
     Dates: start: 20201215, end: 20210107
  7. IVABRADINE [Suspect]
     Active Substance: IVABRADINE
     Dosage: IVABRADINE NOS ?UNK
     Route: 042
     Dates: start: 20151118
  8. TRASTUZUMAB. [Suspect]
     Active Substance: TRASTUZUMAB
     Indication: HER2 POSITIVE BREAST CANCER
     Dosage: 2 MICROGRAM/KILOGRAM
     Route: 042
     Dates: start: 20201215, end: 20210107
  9. URSODEOXYCHOLIC ACID [Concomitant]
     Active Substance: URSODIOL
     Indication: PRODUCT USED FOR UNKNOWN INDICATION
     Dosage: UNK
     Route: 065
     Dates: start: 20200709
  10. QUETIAPINE FUMARATE. [Concomitant]
     Active Substance: QUETIAPINE FUMARATE
     Indication: PRODUCT USED FOR UNKNOWN INDICATION
     Dosage: TN UNSPECFIED?UNK
     Route: 065
  11. VINORELBINE TARTRATE. [Suspect]
     Active Substance: VINORELBINE TARTRATE
     Indication: HER2 POSITIVE BREAST CANCER
     Dosage: UNK MILLIGRAM/SQ. METER
     Route: 065
     Dates: start: 20201215
  12. EXEMESTANE. [Suspect]
     Active Substance: EXEMESTANE
     Indication: HER2 POSITIVE BREAST CANCER
     Dosage: 25 MG, QD
     Route: 065
     Dates: start: 20190819, end: 20200422
  13. BISOPROLOL [Concomitant]
     Active Substance: BISOPROLOL
     Dosage: UNK
     Route: 065
     Dates: start: 20200709
  14. IVABRADINE [Suspect]
     Active Substance: IVABRADINE
     Indication: PRODUCT USED FOR UNKNOWN INDICATION
     Dosage: IVABRADINE NOS?840 MILLIGRAM, Q3WK
     Route: 042
     Dates: start: 20190314, end: 20190314
  15. IVABRADINE [Suspect]
     Active Substance: IVABRADINE
     Dosage: IVABRADINE NOS ?25 MILLIGRAM, QD
     Route: 048
     Dates: start: 20190819, end: 20200422
  16. TRASTUZUMAB EMTANSINE [Suspect]
     Active Substance: ADO-TRASTUZUMAB EMTANSINE
     Indication: HER2 POSITIVE BREAST CANCER
     Dosage: 3.6 MICROGRAM/KILOGRAM, Q3WK
     Route: 042
     Dates: start: 20200506, end: 20201104
  17. PERTUZUMAB. [Suspect]
     Active Substance: PERTUZUMAB
     Indication: HER2 POSITIVE BREAST CANCER
     Dosage: 840 MILLIGRAM, Q3WK
     Route: 042
     Dates: start: 20190314, end: 20190314

REACTIONS (2)
  - Neutropenia [Recovering/Resolving]
  - Off label use [Recovered/Resolved]

NARRATIVE: CASE EVENT DATE: 2020
